FAERS Safety Report 14396490 (Version 1)
Quarter: 2018Q1

REPORT INFORMATION
  Report Type: Spontaneous
  Country: US (occurrence: US)
  Receive Date: 20180116
  Receipt Date: 20180116
  Transmission Date: 20180509
  Serious: No
  Sender: FDA-Public Use
  Company Number: US-ALLERGAN-1726470US

PATIENT
  Age: 53 Year
  Sex: Female

DRUGS (5)
  1. ZOFRAN [Concomitant]
     Active Substance: ONDANSETRON HYDROCHLORIDE
     Indication: NAUSEA
  2. NAPROXEN. [Concomitant]
     Active Substance: NAPROXEN
  3. PROGESTERONE. [Concomitant]
     Active Substance: PROGESTERONE
     Indication: MENOPAUSAL SYMPTOMS
     Dosage: 200 MG, UNK
  4. BOTOX [Suspect]
     Active Substance: ONABOTULINUMTOXINA
     Indication: MIGRAINE
     Dosage: 40 UNITS, SINGLE
     Route: 030
     Dates: start: 20170612, end: 20170612
  5. RELPAX [Concomitant]
     Active Substance: ELETRIPTAN HYDROBROMIDE

REACTIONS (4)
  - Musculoskeletal stiffness [Unknown]
  - Mobility decreased [Unknown]
  - Overdose [Unknown]
  - Neck pain [Unknown]

NARRATIVE: CASE EVENT DATE: 201706
